FAERS Safety Report 7285591-8 (Version None)
Quarter: 2011Q1

REPORT INFORMATION
  Report Type: 
  Country: None (occurrence: None)
  Receive Date: 20110210
  Receipt Date: 20110207
  Transmission Date: 20110831
  Serious: Yes (Death, Hospitalization)
  Sender: FDA-Public Use
  Company Number: A0779272A

PATIENT
  Age: 66 Year
  Sex: Female
  Weight: 93.2 kg

DRUGS (3)
  1. GLUCOPHAGE [Concomitant]
     Dates: start: 19900101, end: 20020101
  2. AVANDIA [Suspect]
     Dosage: 8MG PER DAY
     Route: 048
     Dates: start: 20010101, end: 20020207
  3. METFORMIN [Concomitant]
     Dates: start: 19900101, end: 20020101

REACTIONS (3)
  - CEREBROVASCULAR ACCIDENT [None]
  - HAEMORRHAGE INTRACRANIAL [None]
  - RENAL FAILURE [None]
